FAERS Safety Report 5737606-3 (Version None)
Quarter: 2008Q2

REPORT INFORMATION
  Report Type: 
  Country: None (occurrence: None)
  Receive Date: 20080514
  Receipt Date: 20080505
  Transmission Date: 20081010
  Serious: Yes (Hospitalization)
  Sender: FDA-Public Use
  Company Number: US-AMGEN-US277656

PATIENT
  Sex: Male
  Weight: 81 kg

DRUGS (7)
  1. PANITUMUMAB [Suspect]
     Indication: SQUAMOUS CELL CARCINOMA
     Route: 042
     Dates: start: 20080417
  2. DOCETAXEL [Concomitant]
     Route: 042
     Dates: start: 20080417
  3. CISPLATIN [Concomitant]
     Route: 042
     Dates: start: 20080417
  4. FLUOROURACIL [Concomitant]
     Route: 042
     Dates: start: 20080417
  5. MINOCYCLINE HCL [Concomitant]
  6. NYSTATIN [Concomitant]
  7. OMEPRAZOLE [Concomitant]

REACTIONS (2)
  - FEBRILE NEUTROPENIA [None]
  - MUCOSAL INFLAMMATION [None]
